FAERS Safety Report 8295593-0 (Version None)
Quarter: 2012Q2

REPORT INFORMATION
  Report Type: 
  Country: None (occurrence: None)
  Receive Date: 20120416
  Receipt Date: 20120401
  Transmission Date: 20120825
  Serious: Yes (Hospitalization)
  Sender: FDA-Public Use
  Company Number: 2012-162

PATIENT
  Age: 45 Year
  Sex: Female

DRUGS (2)
  1. CLOZAPINE [Suspect]
     Indication: SCHIZOPHRENIA
     Dosage: 700 MG, QD, ORAL ; 500 MG, QD, ORAL
     Route: 048
  2. VALPROATE SODIUM [Concomitant]

REACTIONS (8)
  - DYSURIA [None]
  - WHITE BLOOD CELL COUNT INCREASED [None]
  - ESCHERICHIA TEST POSITIVE [None]
  - C-REACTIVE PROTEIN INCREASED [None]
  - POLLAKIURIA [None]
  - CULTURE URINE POSITIVE [None]
  - DIZZINESS [None]
  - GAIT DISTURBANCE [None]
